FAERS Safety Report 12331653 (Version 1)
Quarter: 2016Q2

REPORT INFORMATION
  Report Type: Spontaneous
  Country: CN (occurrence: CN)
  Receive Date: 20160504
  Receipt Date: 20160504
  Transmission Date: 20160815
  Serious: Yes (Other)
  Sender: FDA-Public Use
  Company Number: CN-PFIZER INC-2016226712

PATIENT
  Age: 51 Year
  Sex: Female
  Weight: 61 kg

DRUGS (15)
  1. CYCLOPHOSPHAMIDE. [Suspect]
     Active Substance: CYCLOPHOSPHAMIDE
     Indication: BREAST CANCER FEMALE
     Dosage: 900 MG, 1X/DAY
     Route: 041
     Dates: start: 20151114
  2. DEXAMETHASONE SODIUM PHOSPHATE. [Concomitant]
     Active Substance: DEXAMETHASONE SODIUM PHOSPHATE
     Indication: PROPHYLAXIS
     Dosage: 5 MG, 1X/DAY
     Route: 042
     Dates: start: 20151114, end: 20151115
  3. PHARMORUBICIN [Suspect]
     Active Substance: EPIRUBICIN
     Dosage: 70 MG, 1X/DAY
     Route: 041
     Dates: start: 20151115
  4. LANSOPRAZOLE. [Suspect]
     Active Substance: LANSOPRAZOLE
     Indication: PROPHYLAXIS
     Dosage: 30 MG, 1X/DAY
     Route: 041
     Dates: start: 20151114, end: 20151117
  5. SODIUM CHLORIDE. [Concomitant]
     Active Substance: SODIUM CHLORIDE
     Dosage: 100 ML, 1X/DAY
     Route: 041
     Dates: start: 20151114, end: 20151117
  6. GLUCOSE [Concomitant]
     Active Substance: DEXTROSE
     Dosage: 250 ML, 1X/DAY
     Route: 041
     Dates: start: 20151114, end: 20151117
  7. SELENIOUS YEAST [Concomitant]
     Indication: IMMUNISATION
     Dosage: 100 UG, 3X/DAY
     Route: 048
     Dates: start: 20151117, end: 20151123
  8. DEXRAZOXANE. [Suspect]
     Active Substance: DEXRAZOXANE
     Indication: CARDIOVASCULAR EVENT PROPHYLAXIS
     Dosage: 1000 MG, 1X/DAY
     Route: 041
     Dates: start: 20151114, end: 20151115
  9. TROPISETRON HYDROCHLORIDE AND GLUCOSE INJECTION [Concomitant]
     Indication: PROPHYLAXIS
     Dosage: 5 MG, 1X/DAY
     Route: 041
     Dates: start: 20151114, end: 20151117
  10. PHARMORUBICIN [Suspect]
     Active Substance: EPIRUBICIN
     Indication: BREAST CANCER FEMALE
     Dosage: 80 MG, 1X/DAY
     Route: 041
     Dates: start: 20151114
  11. SODIUM CHLORIDE. [Concomitant]
     Active Substance: SODIUM CHLORIDE
     Dosage: 250 ML, 1X/DAY
     Route: 041
     Dates: start: 20151114, end: 20151115
  12. PROMETHAZINE HYDROCHLORIDE. [Concomitant]
     Active Substance: PROMETHAZINE HYDROCHLORIDE
     Indication: PROPHYLAXIS
     Dosage: 25 MG, 1X/DAY
     Route: 030
     Dates: start: 20151114, end: 20151115
  13. BATILOL [Concomitant]
     Indication: WHITE BLOOD CELL COUNT
     Dosage: 40 MG, 3X/DAY
     Route: 048
     Dates: start: 20151117, end: 20151123
  14. VITAMIN B4 [Concomitant]
     Indication: WHITE BLOOD CELL COUNT
     Dosage: 20 MG, 3X/DAY
     Route: 048
     Dates: start: 20151117, end: 20151123
  15. SODIUM CHLORIDE. [Concomitant]
     Active Substance: SODIUM CHLORIDE
     Dosage: 50 ML, 1X/DAY
     Route: 041
     Dates: start: 20151114, end: 20151114

REACTIONS (2)
  - Bone marrow failure [Recovering/Resolving]
  - Liver injury [Recovering/Resolving]

NARRATIVE: CASE EVENT DATE: 20151210
